FAERS Safety Report 4675558-8 (Version None)
Quarter: 2005Q2

REPORT INFORMATION
  Report Type: 
  Country: None (occurrence: None)
  Receive Date: 20050527
  Receipt Date: 20050412
  Transmission Date: 20051028
  Serious: No
  Sender: FDA-Public Use
  Company Number: US-BRISTOL-MYERS SQUIBB COMPANY-12930517

PATIENT
  Age: 45 Year
  Sex: Male
  Weight: 68 kg

DRUGS (12)
  1. ABILIFY [Suspect]
     Indication: ANGER
     Dates: start: 20050411
  2. LEXAPRO [Concomitant]
  3. DOXYCYCLINE [Concomitant]
  4. VALTREX [Concomitant]
  5. CLONAZEPAM [Concomitant]
  6. TRIAMCINOLONE [Concomitant]
     Route: 061
  7. KETOCONAZOLE [Concomitant]
  8. FLONASE [Concomitant]
  9. SPIRIVA [Concomitant]
  10. MULTI-VITAMINS [Concomitant]
  11. GLUCOSAMINE [Concomitant]
  12. REFRESH [Concomitant]

REACTIONS (3)
  - ANGER [None]
  - FEELING ABNORMAL [None]
  - HEADACHE [None]
